FAERS Safety Report 15929557 (Version 2)
Quarter: 2019Q1

REPORT INFORMATION
  Report Type: Spontaneous
  Country: US (occurrence: US)
  Receive Date: 20190206
  Receipt Date: 20190221
  Transmission Date: 20190417
  Serious: Yes (Other)
  Sender: FDA-Public Use
  Company Number: US-ASTRAZENECA-2018SF66171

PATIENT
  Sex: Male

DRUGS (25)
  1. WARFARIN SODIUM. [Concomitant]
     Active Substance: WARFARIN SODIUM
  2. FUROSEMIDE. [Concomitant]
     Active Substance: FUROSEMIDE
  3. POTASSIUM CHLORIDE. [Concomitant]
     Active Substance: POTASSIUM CHLORIDE
  4. CIALIS [Concomitant]
     Active Substance: TADALAFIL
  5. NITROSTAT [Concomitant]
     Active Substance: NITROGLYCERIN
  6. MELOXICAM. [Concomitant]
     Active Substance: MELOXICAM
  7. PROTONIX [Suspect]
     Active Substance: PANTOPRAZOLE SODIUM
     Route: 065
     Dates: start: 2006, end: 2016
  8. MONTELUKAST [Concomitant]
     Active Substance: MONTELUKAST SODIUM
  9. LEVOTHYROXINE. [Concomitant]
     Active Substance: LEVOTHYROXINE
  10. RANEXA [Concomitant]
     Active Substance: RANOLAZINE
  11. CARAFATE [Concomitant]
     Active Substance: SUCRALFATE
  12. NEXIUM [Suspect]
     Active Substance: ESOMEPRAZOLE MAGNESIUM
     Route: 048
     Dates: start: 2006, end: 2016
  13. NEXIUM [Suspect]
     Active Substance: ESOMEPRAZOLE MAGNESIUM
     Route: 048
  14. VOLTAREN [Concomitant]
     Active Substance: DICLOFENAC SODIUM
  15. LOVENOX [Concomitant]
     Active Substance: ENOXAPARIN SODIUM
  16. GLIPIZIDE. [Concomitant]
     Active Substance: GLIPIZIDE
  17. ASPIRIN. [Concomitant]
     Active Substance: ASPIRIN
  18. CELEBREX [Concomitant]
     Active Substance: CELECOXIB
  19. TOPROL XL [Concomitant]
     Active Substance: METOPROLOL SUCCINATE
  20. METOLAZONE. [Concomitant]
     Active Substance: METOLAZONE
  21. FLUTICASONE PROPIONATE. [Concomitant]
     Active Substance: FLUTICASONE PROPIONATE
  22. AUGMENTIN [Concomitant]
     Active Substance: AMOXICILLIN\CLAVULANATE POTASSIUM
  23. NEXIUM [Suspect]
     Active Substance: ESOMEPRAZOLE MAGNESIUM
     Route: 048
     Dates: start: 20130807, end: 20161117
  24. IPRATROPIUM BROMIDE. [Concomitant]
     Active Substance: IPRATROPIUM BROMIDE
  25. PROAIR HFA [Concomitant]
     Active Substance: ALBUTEROL SULFATE

REACTIONS (2)
  - Chronic kidney disease [Unknown]
  - Renal injury [Unknown]
